FAERS Safety Report 7301399 (Version 2)
Quarter: 2013Q4

REPORT INFORMATION
  Report Type: Spontaneous
  Country: US (occurrence: US)
  Receive Date: 20100302
  Receipt Date: 20131125
  Transmission Date: 20140711
  Serious: Yes (Other)
  Sender: FDA-Public Use
  Company Number: US-JNJFOC-20100210229

PATIENT
  Age: 55 Year
  Sex: Male
  Weight: 86.18 kg

DRUGS (7)
  1. FENTANYL TRANSDERMAL SYSTEM [Suspect]
     Indication: NECK PAIN
     Dosage: 2 100UG/HR PATCHES
     Route: 062
     Dates: end: 20100218
  2. FENTANYL TRANSDERMAL SYSTEM [Suspect]
     Indication: NECK PAIN
     Route: 062
     Dates: start: 1999
  3. FENTANYL TRANSDERMAL SYSTEM [Suspect]
     Indication: BACK PAIN
     Dosage: 2 100UG/HR PATCHES
     Route: 062
     Dates: end: 20100218
  4. FENTANYL TRANSDERMAL SYSTEM [Suspect]
     Indication: BACK PAIN
     Route: 062
     Dates: start: 1999
  5. FENTANYL TRANSDERMAL SYSTEM [Suspect]
     Indication: NECK PAIN
     Dosage: 100UG/HR+100UG/HR=200UG/HR
     Route: 062
     Dates: start: 20100218
  6. FENTANYL TRANSDERMAL SYSTEM [Suspect]
     Indication: BACK PAIN
     Dosage: 100UG/HR+100UG/HR=200UG/HR
     Route: 062
     Dates: start: 20100218
  7. ZOLOFT [Concomitant]
     Indication: NERVOUSNESS
     Route: 048
     Dates: start: 1999

REACTIONS (3)
  - Thrombosis [Not Recovered/Not Resolved]
  - Pain [Not Recovered/Not Resolved]
  - Product quality issue [Unknown]
